FAERS Safety Report 5598685-X (Version None)
Quarter: 2008Q1

REPORT INFORMATION
  Report Type: 
  Country: None (occurrence: None)
  Receive Date: 20080122
  Receipt Date: 20080114
  Transmission Date: 20080703
  Serious: Yes (Life-Threatening)
  Sender: FDA-Public Use
  Company Number: US-BAXTER-2008BH000487

PATIENT

DRUGS (1)
  1. HEPARIN SODIUM [Suspect]
     Indication: PROPHYLAXIS
     Route: 042
     Dates: start: 20080101

REACTIONS (2)
  - ANAPHYLACTIC REACTION [None]
  - ANGIOEDEMA [None]
